FAERS Safety Report 23157441 (Version 1)
Quarter: 2023Q4

REPORT INFORMATION
  Report Type: Spontaneous
  Country: KR (occurrence: KR)
  Receive Date: 20231108
  Receipt Date: 20231108
  Transmission Date: 20240109
  Serious: Yes (Other)
  Sender: FDA-Public Use
  Company Number: KR-SA-SAC20231102000255

PATIENT
  Age: 23 Year
  Sex: Female

DRUGS (1)
  1. ZOLPIDEM TARTRATE [Suspect]
     Active Substance: ZOLPIDEM TARTRATE
     Indication: Insomnia
     Dosage: UNK
     Route: 065
     Dates: start: 2018, end: 2023

REACTIONS (9)
  - Alcoholism [Unknown]
  - Feeling abnormal [Unknown]
  - Abnormal behaviour [Unknown]
  - Cerebral disorder [Unknown]
  - Tongue disorder [Unknown]
  - Gait disturbance [Unknown]
  - Memory impairment [Unknown]
  - Overdose [Unknown]
  - Labelled drug-food interaction issue [Unknown]

NARRATIVE: CASE EVENT DATE: 20220101
